FAERS Safety Report 17325961 (Version 1)
Quarter: 2020Q1

REPORT INFORMATION
  Report Type: Spontaneous
  Country: US (occurrence: US)
  Receive Date: 20200127
  Receipt Date: 20200127
  Transmission Date: 20200409
  Serious: No
  Sender: FDA-Public Use
  Company Number: US-PFIZER INC-2020032468

PATIENT

DRUGS (2)
  1. NEURONTIN [Interacting]
     Active Substance: GABAPENTIN
     Dosage: 100 MG, 2X/DAY
  2. LYRICA [Suspect]
     Active Substance: PREGABALIN
     Dosage: 100 MG, 2X/DAY

REACTIONS (3)
  - Vomiting [Unknown]
  - Drug interaction [Unknown]
  - Nausea [Unknown]
